FAERS Safety Report 23645270 (Version 8)
Quarter: 2025Q3

REPORT INFORMATION
  Report Type: Spontaneous
  Country: AR (occurrence: AR)
  Receive Date: 20240318
  Receipt Date: 20250715
  Transmission Date: 20251020
  Serious: Yes (Other)
  Sender: SANDOZ
  Company Number: AR-002147023-NVSC2023AR194856

PATIENT
  Age: 54 Year
  Sex: Female

DRUGS (9)
  1. KISQALI [Suspect]
     Active Substance: RIBOCICLIB SUCCINATE
     Dosage: 600 MG, QD
     Route: 048
  2. KISQALI [Suspect]
     Active Substance: RIBOCICLIB SUCCINATE
     Dosage: 200 MG, TID
     Route: 048
     Dates: start: 202308
  3. KISQALI [Suspect]
     Active Substance: RIBOCICLIB SUCCINATE
     Route: 048
     Dates: start: 20230804
  4. KISQALI [Suspect]
     Active Substance: RIBOCICLIB SUCCINATE
     Indication: Breast cancer metastatic
     Route: 065
     Dates: start: 20230802
  5. KISQALI [Suspect]
     Active Substance: RIBOCICLIB SUCCINATE
     Route: 065
     Dates: start: 20240702
  6. LETROZOLE [Suspect]
     Active Substance: LETROZOLE
     Indication: Breast cancer metastatic
     Dosage: 2.5 MG, QD
     Route: 048
     Dates: start: 20230804
  7. LETROZOLE [Suspect]
     Active Substance: LETROZOLE
     Route: 065
     Dates: start: 20230804
  8. ZOMETA [Suspect]
     Active Substance: ZOLEDRONIC ACID
     Indication: Breast cancer metastatic
     Dosage: UNK UNK, QMO
     Route: 065
     Dates: start: 20230804
  9. LEVOTHYROXINE [Concomitant]
     Active Substance: LEVOTHYROXINE
     Indication: Product used for unknown indication
     Route: 065
     Dates: start: 2003

REACTIONS (37)
  - Bone cancer [Unknown]
  - Spinal fracture [Unknown]
  - Spinal pain [Unknown]
  - Metastases to spine [Unknown]
  - Movement disorder [Unknown]
  - Cyanosis [Unknown]
  - Limb discomfort [Unknown]
  - Limb mass [Unknown]
  - Gait disturbance [Unknown]
  - Contusion [Unknown]
  - Nerve compression [Unknown]
  - Dysstasia [Unknown]
  - Bladder discomfort [Unknown]
  - Vein disorder [Unknown]
  - Bone disorder [Unknown]
  - Drug intolerance [Unknown]
  - Urinary incontinence [Unknown]
  - Alopecia [Not Recovered/Not Resolved]
  - Decreased immune responsiveness [Unknown]
  - Feeling hot [Unknown]
  - Inflammation [Unknown]
  - Hypersensitivity [Unknown]
  - Anaemia [Unknown]
  - Red blood cell count decreased [Unknown]
  - White blood cell count decreased [Unknown]
  - Pain [Unknown]
  - Rash [Recovering/Resolving]
  - Headache [Unknown]
  - Nausea [Unknown]
  - Dizziness [Unknown]
  - Pruritus [Unknown]
  - Erythema [Recovering/Resolving]
  - Hypoaesthesia [Unknown]
  - Pain in extremity [Unknown]
  - Fatigue [Unknown]
  - Urticaria [Unknown]
  - Inappropriate schedule of product administration [Unknown]

NARRATIVE: CASE EVENT DATE: 20230801
